FAERS Safety Report 22977266 (Version 2)
Quarter: 2024Q4

REPORT INFORMATION
  Report Type: Spontaneous
  Country: PT (occurrence: PT)
  Receive Date: 20230925
  Receipt Date: 20241115
  Transmission Date: 20250114
  Serious: Yes (Other)
  Sender: ACCORD
  Company Number: PT-EMADD-202307317180175115517

PATIENT
  Age: 63 Year
  Sex: Female

DRUGS (2)
  1. ESOMEPRAZOLE [Suspect]
     Active Substance: ESOMEPRAZOLE
     Indication: Hypertension
     Dosage: 40 MILLIGRAM, ONCE A DAY
  2. OLMESARTAN [Concomitant]
     Active Substance: OLMESARTAN
     Indication: Hypertension

REACTIONS (2)
  - Dermatitis allergic [Recovered/Resolved]
  - Lichen planus [Recovered/Resolved]
